FAERS Safety Report 6496835-4 (Version None)
Quarter: 2009Q4

REPORT INFORMATION
  Report Type: 
  Country: None (occurrence: None)
  Receive Date: 20091125
  Receipt Date: 20090203
  Transmission Date: 20100525
  Serious: Yes (Other)
  Sender: FDA-Public Use
  Company Number: 2009BH001965

PATIENT
  Age: 48 Year
  Sex: Male

DRUGS (10)
  1. DIANEAL [Suspect]
     Indication: PERITONEAL DIALYSIS
     Dosage: 7 L; EVERY DAY; IP; 10 L
     Route: 033
     Dates: start: 20060113, end: 20090126
  2. DIANEAL [Suspect]
     Indication: PERITONEAL DIALYSIS
     Dosage: 7 L; EVERY DAY; IP; 10 L
     Route: 033
     Dates: start: 20090126
  3. DIANEAL [Suspect]
     Indication: PERITONEAL DIALYSIS
     Dosage: 2 L; EVERY DAY; IP
     Route: 033
     Dates: start: 20080101, end: 20090126
  4. CLONAZEPAM [Concomitant]
  5. EPOGEN [Concomitant]
  6. METOPROLOL [Concomitant]
  7. NEPHROCAPS [Concomitant]
  8. NU-IRON [Concomitant]
  9. PHOSLO [Concomitant]
  10. PROMETHAZINE [Concomitant]

REACTIONS (2)
  - PERITONITIS [None]
  - PERITONITIS BACTERIAL [None]
